FAERS Safety Report 24760297 (Version 1)
Quarter: 2024Q4

REPORT INFORMATION
  Report Type: Spontaneous
  Country: GB (occurrence: GB)
  Receive Date: 20241220
  Receipt Date: 20241220
  Transmission Date: 20250115
  Serious: Yes (Other)
  Sender: MYLAN
  Company Number: GB-MHRA-EMIS-6470-261a999a-dc7f-4492-8d2f-0909a08ac78c

PATIENT
  Age: 96 Year
  Sex: Male
  Weight: 61 kg

DRUGS (3)
  1. ATORVASTATIN [Suspect]
     Active Substance: ATORVASTATIN
     Indication: Product used for unknown indication
     Dosage: 1 DOSAGE FORM, QD
     Route: 065
  2. CARBOMER [Concomitant]
     Active Substance: CARBOMER
     Dosage: 10 GRAM (USE AS REQUIRED)
     Route: 065
     Dates: start: 20240830, end: 20241012
  3. CODEINE [Concomitant]
     Active Substance: CODEINE
     Indication: Myalgia
     Dosage: 1 DOSAGE FORM, QID (TAKE ONE 4 TIMES/DAY (IF REQUIRED))
     Route: 065
     Dates: start: 20241122

REACTIONS (4)
  - Acute necrotising myelitis [Recovering/Resolving]
  - Myositis [Recovering/Resolving]
  - Myalgia [Unknown]
  - Immune-mediated myositis [Unknown]

NARRATIVE: CASE EVENT DATE: 20240101
